FAERS Safety Report 6111220-2 (Version None)
Quarter: 2009Q1

REPORT INFORMATION
  Report Type: 
  Country: None (occurrence: None)
  Receive Date: 20090309
  Receipt Date: 20090224
  Transmission Date: 20090719
  Serious: Yes (Other)
  Sender: FDA-Public Use
  Company Number: GXKR2009GB02365

PATIENT
  Age: 67 Year
  Sex: Male
  Weight: 60 kg

DRUGS (10)
  1. MIRTAZAPINE [Suspect]
     Indication: DEPRESSION
     Dosage: 45 MG, QD, ORAL
     Route: 048
     Dates: start: 20060101, end: 20080814
  2. ADCAL-D3 (CALCIUM CARBONATE, COLECALCIFEROL) [Concomitant]
  3. ACETYLSALICYLIC ACID SRT [Concomitant]
  4. ATENOLOL [Concomitant]
  5. ATORVASTATIN CALCIUM [Concomitant]
  6. CODEINE SUL TAB [Concomitant]
  7. FERROUS SULPHATE (FERROUS SULFATE) [Concomitant]
  8. PARACETAMOL (PARACETAMOL [Concomitant]
  9. VALPROATE SODIUM [Concomitant]
  10. TEMAZEPAM [Concomitant]

REACTIONS (1)
  - HYPERSEXUALITY [None]
